FAERS Safety Report 24006065 (Version 4)
Quarter: 2024Q4

REPORT INFORMATION
  Report Type: Spontaneous
  Country: US (occurrence: US)
  Receive Date: 20240624
  Receipt Date: 20241029
  Transmission Date: 20250115
  Serious: Yes (Hospitalization)
  Sender: SANOFI AVENTIS
  Company Number: US-SA-SAC20240617000297

PATIENT
  Age: 64 Year
  Sex: Female

DRUGS (4)
  1. DUPIXENT [Suspect]
     Active Substance: DUPILUMAB
     Indication: Dermatitis atopic
     Dosage: 300 MG, QOW
     Route: 058
     Dates: start: 20240506, end: 202408
  2. PREDNISONE [Suspect]
     Active Substance: PREDNISONE
     Dosage: UNK
     Dates: start: 202402, end: 2024
  3. METFORMIN [Concomitant]
     Active Substance: METFORMIN HYDROCHLORIDE
     Dosage: UNK
     Dates: end: 2024
  4. METFORMIN [Concomitant]
     Active Substance: METFORMIN HYDROCHLORIDE
     Dosage: INCREASED DOSE TO 1000 MG

REACTIONS (17)
  - Cellulitis [Unknown]
  - Skin haemorrhage [Unknown]
  - Skin weeping [Unknown]
  - Vomiting [Unknown]
  - Visual impairment [Unknown]
  - Skin fissures [Unknown]
  - Weight increased [Unknown]
  - Dry skin [Not Recovered/Not Resolved]
  - Sleep disorder [Not Recovered/Not Resolved]
  - Skin disorder [Unknown]
  - Hot flush [Unknown]
  - Affective disorder [Unknown]
  - Increased appetite [Unknown]
  - Gait disturbance [Not Recovered/Not Resolved]
  - Pruritus [Unknown]
  - Pain of skin [Not Recovered/Not Resolved]
  - Catheter site discharge [Not Recovered/Not Resolved]

NARRATIVE: CASE EVENT DATE: 20240101
